FAERS Safety Report 6882072-8 (Version None)
Quarter: 2010Q3

REPORT INFORMATION
  Report Type: 
  Country: None (occurrence: None)
  Receive Date: 20100727
  Receipt Date: 20100727
  Transmission Date: 20110219
  Serious: Yes (Disabling, Other)
  Sender: FDA-Public Use
  Company Number: None

PATIENT
  Age: 48 Year
  Sex: Female
  Weight: 65.7716 kg

DRUGS (1)
  1. NUVARING [Suspect]
     Indication: METRORRHAGIA
     Dosage: 1 ONCE A WEEK VAG
     Route: 067
     Dates: start: 20100718, end: 20100720

REACTIONS (8)
  - CRYING [None]
  - DEVICE ISSUE [None]
  - HALLUCINATION [None]
  - HYPERHIDROSIS [None]
  - MALAISE [None]
  - NAUSEA [None]
  - SUICIDAL IDEATION [None]
  - TREMOR [None]
